FAERS Safety Report 23882787 (Version 2)
Quarter: 2024Q2

REPORT INFORMATION
  Report Type: Report from Study
  Country: CA (occurrence: CA)
  Receive Date: 20240522
  Receipt Date: 20240531
  Transmission Date: 20240716
  Serious: Yes (Hospitalization)
  Sender: FDA-Public Use
  Company Number: CA-CELLTRION INC.-2024CA011819

PATIENT

DRUGS (7)
  1. INFLIXIMAB [Suspect]
     Active Substance: INFLIXIMAB
     Indication: Colitis
     Dosage: HIGH-DOSE INTRAVENOUS CORTICOSTEROIDS (IVCS) WITH INFLIXIMAB INTRODUCED BY DAY 5
  2. ADALIMUMAB [Suspect]
     Active Substance: ADALIMUMAB\ISOPROPYL ALCOHOL
     Indication: Colitis
  3. TOFACITINIB [Suspect]
     Active Substance: TOFACITINIB
     Indication: Colitis
     Dosage: STARTED AT 10 MG TWICE A DAY
  4. TOFACITINIB [Suspect]
     Active Substance: TOFACITINIB
     Dosage: 5 MG TWICE A DAY AFTER 8 WEEKS IF REMISSION WAS ACHIEVED
  5. CORTICOSTEROID NOS [Suspect]
     Active Substance: CORTICOSTEROID NOS
     Indication: Colitis
     Dosage: HIGH-DOSE INTRAVENOUS CORTICOSTEROIDS (IVCS) WITH INFLIXIMAB INTRODUCED BY DAY 5
     Route: 042
  6. AZATHIOPRINE [Suspect]
     Active Substance: AZATHIOPRINE
     Indication: Colitis
  7. CORTICOSTEROID NOS [Concomitant]
     Active Substance: CORTICOSTEROID NOS
     Dosage: PO CORTICOSTEROIDS (TAPERING)
     Route: 048

REACTIONS (4)
  - Condition aggravated [Recovered/Resolved]
  - Drug specific antibody present [Unknown]
  - Treatment noncompliance [Unknown]
  - Treatment failure [Unknown]
